FAERS Safety Report 17214864 (Version 1)
Quarter: 2020Q3

REPORT INFORMATION
  Report Type: Spontaneous
  Country: US (occurrence: US)
  Receive Date: 20191206
  Receipt Date: 20191206
  Transmission Date: 20201105
  Serious: No
  Sender: FDA-Public Use
  Company Number: None

PATIENT

DRUGS (2)
  1. EPINEPHRINE. [Suspect]
     Active Substance: EPINEPHRINE
  2. EPHEDRINE. [Suspect]
     Active Substance: EPHEDRINE

REACTIONS (3)
  - Wrong product administered [None]
  - Product dispensing error [None]
  - Wrong product stored [None]
